FAERS Safety Report 16041882 (Version 1)
Quarter: 2019Q1

REPORT INFORMATION
  Report Type: Spontaneous
  Country: US (occurrence: US)
  Receive Date: 20190306
  Receipt Date: 20190306
  Transmission Date: 20190418
  Serious: No
  Sender: FDA-Public Use
  Company Number: US-AKORN PHARMACEUTICALS-2018AKN00114

PATIENT
  Age: 39 Year
  Sex: Female

DRUGS (5)
  1. MYORISAN [Suspect]
     Active Substance: ISOTRETINOIN
     Dosage: 40 MG, 1X/DAY
     Route: 048
     Dates: start: 201801, end: 20180120
  2. MYORISAN [Suspect]
     Active Substance: ISOTRETINOIN
     Dosage: 80 MG, 1X/DAY
     Route: 048
     Dates: start: 20171215, end: 201801
  3. INTRAUTERINE DEVICE [Concomitant]
     Active Substance: INTRAUTERINE DEVICE
  4. MYORISAN [Suspect]
     Active Substance: ISOTRETINOIN
     Indication: ACNE
     Dosage: 40 MG, 1X/DAY
     Route: 048
     Dates: start: 20171114, end: 20171215
  5. PAXIL [Concomitant]
     Active Substance: PAROXETINE HYDROCHLORIDE

REACTIONS (2)
  - Migraine [Recovered/Resolved]
  - Headache [Not Recovered/Not Resolved]

NARRATIVE: CASE EVENT DATE: 20180102
